FAERS Safety Report 8276217-5 (Version None)
Quarter: 2012Q2

REPORT INFORMATION
  Report Type: 
  Country: None (occurrence: None)
  Receive Date: 20120412
  Receipt Date: 20120406
  Transmission Date: 20120825
  Serious: Yes (Hospitalization)
  Sender: FDA-Public Use
  Company Number: KR-UCBSA-054778

PATIENT
  Sex: Female
  Weight: 64 kg

DRUGS (2)
  1. CZP (CERTOLIZUMAB PEGOL) [Suspect]
     Route: 058
     Dates: start: 20101213
  2. CZP (CERTOLIZUMAB PEGOL) [Suspect]
     Indication: RHEUMATOID ARTHRITIS
     Route: 058
     Dates: start: 20100603, end: 20100101

REACTIONS (1)
  - UPPER RESPIRATORY TRACT INFECTION [None]
